FAERS Safety Report 7142450 (Version 3)
Quarter: 2012Q4

REPORT INFORMATION
  Report Type: Report from Study
  Country: DE (occurrence: DE)
  Receive Date: 20091007
  Receipt Date: 20121221
  Transmission Date: 20130627
  Serious: Yes (Hospitalization, Other)
  Sender: FDA-Public Use
  Company Number: PHHO2009DE10340

PATIENT
  Age: 70 Year
  Sex: Male
  Weight: 62 kg

DRUGS (21)
  1. STI571 [Suspect]
     Indication: COLORECTAL CANCER
     Dosage: 300 mg, UNK
     Route: 048
     Dates: start: 20080507, end: 20080930
  2. STI571 [Suspect]
     Dosage: 300 mg,TBL 100 mg, 1x/day, 21 days
     Route: 048
     Dates: end: 20090520
  3. STI571 [Suspect]
     Dosage: 200 mg, (1 in 1 D)
     Route: 048
     Dates: end: 20090816
  4. OXALIPLATIN [Suspect]
     Indication: COLORECTAL CANCER
     Dosage: 100 mg/m2, UNK
     Route: 042
     Dates: start: 20080507, end: 20080930
  5. OXALIPLATIN [Suspect]
     Dosage: 100 mg/m2, 1 in 3 wk, 2L
     Route: 042
     Dates: end: 20081126
  6. OXALIPLATIN [Suspect]
     Dosage: 100 mg/m2, 2hrs all 3 weeks, route D1-D22 180mg
     Dates: end: 20090520
  7. OXALIPLATIN [Suspect]
     Dosage: 180 mg, UNK
     Route: 042
     Dates: end: 20090729
  8. CAPECITABINE [Suspect]
     Indication: COLORECTAL CANCER
     Dosage: 850 mg/m2, UNK
     Route: 048
     Dates: start: 20080507, end: 20080930
  9. CAPECITABINE [Suspect]
     Dosage: 1500 mg, given on day 1 to day 14 every 21 days
     Route: 048
     Dates: end: 20081126
  10. CAPECITABINE [Suspect]
     Dosage: 1500 mg, TBL A 500 mg/daily, 14 days
     Route: 048
     Dates: end: 20090520
  11. CAPECITABINE [Suspect]
     Dosage: 1000 mg, BID
     Route: 048
     Dates: end: 20090812
  12. BEVACIZUMAB [Suspect]
     Indication: COLORECTAL CANCER
     Dosage: 7.5 mg/kg, UNK
     Route: 042
     Dates: start: 20080507, end: 20080930
  13. BEVACIZUMAB [Suspect]
     Dosage: 7.5 mg/kg, 1 in 3 wk
     Route: 042
     Dates: end: 20081126
  14. BEVACIZUMAB [Suspect]
     Dosage: 500 mg, 75 mg/m2, 30min, route D1-D22
     Route: 042
     Dates: end: 20090520
  15. BEVACIZUMAB [Suspect]
     Dosage: UNK
     Route: 042
     Dates: end: 20090816
  16. RAMIPRIL [Concomitant]
  17. BISOPROLOL [Concomitant]
  18. AMARYL [Concomitant]
  19. HCT [Concomitant]
  20. FUROSEMIDE [Concomitant]
  21. PANTOZOL [Concomitant]

REACTIONS (11)
  - C-reactive protein increased [Recovered/Resolved with Sequelae]
  - General physical health deterioration [Recovered/Resolved with Sequelae]
  - Dehydration [Recovered/Resolved]
  - Asthenia [Recovered/Resolved]
  - Hypokalaemia [Recovered/Resolved]
  - Gait disturbance [Recovering/Resolving]
  - Diarrhoea [Recovered/Resolved]
  - Neuropathy peripheral [Recovering/Resolving]
  - Vomiting [Not Recovered/Not Resolved]
  - Prostatomegaly [Recovered/Resolved with Sequelae]
  - Blood calcitonin decreased [Recovered/Resolved with Sequelae]
